FAERS Safety Report 7215115-2 (Version None)
Quarter: 2011Q1

REPORT INFORMATION
  Report Type: 
  Country: None (occurrence: None)
  Receive Date: 20110107
  Receipt Date: 20100826
  Transmission Date: 20110831
  Serious: No
  Sender: FDA-Public Use
  Company Number: A0877894A

PATIENT
  Age: 67 Year
  Sex: Male

DRUGS (11)
  1. DICYCLOMINE [Concomitant]
  2. AMLODIPINE [Concomitant]
  3. SIMVASTATIN [Concomitant]
  4. ASCORBIC ACID [Concomitant]
  5. METFORMIN [Concomitant]
  6. LOVAZA [Suspect]
     Dosage: 2CAP TWICE PER DAY
     Route: 048
     Dates: start: 20090801, end: 20100826
  7. METOPROLOL [Concomitant]
  8. RANITIDINE [Concomitant]
  9. MULTI-VITAMIN [Concomitant]
  10. KAPIDEX [Concomitant]
  11. VITAMIN B [Concomitant]

REACTIONS (6)
  - MUSCULOSKELETAL DISCOMFORT [None]
  - PAIN [None]
  - MOVEMENT DISORDER [None]
  - SWELLING [None]
  - GOUT [None]
  - ERYTHEMA [None]
